FAERS Safety Report 4371768-8 (Version None)
Quarter: 2004Q2

REPORT INFORMATION
  Report Type: 
  Country: None (occurrence: None)
  Receive Date: 20040602
  Receipt Date: 20040517
  Transmission Date: 20050107
  Serious: Yes (Hospitalization)
  Sender: FDA-Public Use
  Company Number: 198325

PATIENT
  Age: 61 Year
  Sex: Female
  Weight: 99.7913 kg

DRUGS (4)
  1. AVONEX [Suspect]
     Indication: MULTIPLE SCLEROSIS
     Dosage: 30 MCG QW; IM
     Route: 030
     Dates: start: 19990101
  2. SYNTHROID [Concomitant]
  3. ZESTRIL [Concomitant]
  4. ZOCOR [Concomitant]

REACTIONS (3)
  - ARTHRALGIA [None]
  - CHEST PAIN [None]
  - DIVERTICULITIS [None]
